FAERS Safety Report 23509925 (Version 3)
Quarter: 2024Q1

REPORT INFORMATION
  Report Type: Spontaneous
  Country: US (occurrence: US)
  Receive Date: 20240211
  Receipt Date: 20240327
  Transmission Date: 20240410
  Serious: Yes (Disabling)
  Sender: FDA-Public Use
  Company Number: US-SA-SAC20240207001540

PATIENT
  Age: 69 Year
  Sex: Female

DRUGS (1)
  1. DUPIXENT [Suspect]
     Active Substance: DUPILUMAB
     Indication: Asthma
     Dosage: 300 MG, QOW
     Route: 058

REACTIONS (7)
  - Arthralgia [Unknown]
  - Cough [Unknown]
  - Headache [Unknown]
  - Throat irritation [Unknown]
  - Dyspnoea [Unknown]
  - Gait disturbance [Unknown]
  - Pruritus [Unknown]
